FAERS Safety Report 9682783 (Version 1)
Quarter: 2013Q4

REPORT INFORMATION
  Report Type: Spontaneous
  Country: TW (occurrence: TW)
  Receive Date: 20131112
  Receipt Date: 20131112
  Transmission Date: 20140711
  Serious: Yes (Hospitalization)
  Sender: FDA-Public Use
  Company Number: PHHY2013TW126458

PATIENT
  Age: 58 Year
  Sex: Male

DRUGS (8)
  1. CLARITHROMYCIN [Suspect]
  2. TACROLIMUS [Interacting]
     Dosage: 1.5 MG
  3. MYCOPHENOLATE [Suspect]
     Dosage: 180 MG, BID
  4. ASPIRIN [Concomitant]
  5. BISOPROLOL [Concomitant]
  6. GLIMEPIRIDE [Concomitant]
  7. METFORMIN [Concomitant]
  8. ATORVASTATIN [Concomitant]

REACTIONS (18)
  - Brucellosis [Unknown]
  - Pyrexia [Recovered/Resolved]
  - Chills [Unknown]
  - Hyperhidrosis [Unknown]
  - Malaise [Unknown]
  - Decreased appetite [Unknown]
  - Abdominal pain upper [Unknown]
  - Renal failure acute [Recovered/Resolved]
  - Blood creatinine increased [Recovered/Resolved]
  - Drug level increased [Recovered/Resolved]
  - Aspartate aminotransferase increased [Recovered/Resolved]
  - Alanine aminotransferase increased [Recovered/Resolved]
  - Blood alkaline phosphatase increased [Recovered/Resolved]
  - Gamma-glutamyltransferase increased [Recovered/Resolved]
  - Leukopenia [Recovered/Resolved]
  - Thrombocytopenia [Recovered/Resolved]
  - Liver function test abnormal [Recovered/Resolved]
  - Drug interaction [Recovered/Resolved]
